FAERS Safety Report 6435227-0 (Version None)
Quarter: 2009Q4

REPORT INFORMATION
  Report Type: 
  Country: None (occurrence: None)
  Receive Date: 20091110
  Receipt Date: 20091104
  Transmission Date: 20100525
  Serious: Yes (Hospitalization)
  Sender: FDA-Public Use
  Company Number: US-RB-022343-09

PATIENT
  Age: 65 Year
  Sex: Female

DRUGS (1)
  1. SUBOXONE [Suspect]
     Indication: DRUG USE FOR UNKNOWN INDICATION
     Dosage: UNKNOWN DOSING DETAILS
     Route: 065
     Dates: start: 20091013

REACTIONS (5)
  - ANGINA PECTORIS [None]
  - CONSTIPATION [None]
  - DYSURIA [None]
  - MALAISE [None]
  - MYOCARDIAL INFARCTION [None]
